FAERS Safety Report 6499982-6 (Version None)
Quarter: 2009Q4

REPORT INFORMATION
  Report Type: 
  Country: None (occurrence: None)
  Receive Date: 20091216
  Receipt Date: 20081216
  Transmission Date: 20100525
  Serious: Yes (Congenital Anomaly)
  Sender: FDA-Public Use
  Company Number: GB-RANBAXY-2008RR-17587

PATIENT
  Sex: Female

DRUGS (2)
  1. LAMOTRIGINE [Suspect]
     Indication: CONVULSION
     Dosage: 200 MG, QD
     Route: 064
  2. TOPAMAX [Suspect]
     Indication: CONVULSION
     Dosage: 250 MG, QD
     Route: 064

REACTIONS (2)
  - HERNIA CONGENITAL [None]
  - HYDROCELE [None]
